FAERS Safety Report 6840808-6 (Version None)
Quarter: 2010Q2

REPORT INFORMATION
  Report Type: 
  Country: None (occurrence: None)
  Receive Date: 20100629
  Receipt Date: 20100527
  Transmission Date: 20101027
  Serious: No
  Sender: FDA-Public Use
  Company Number: US-WYE-H15610410

PATIENT
  Sex: Female

DRUGS (2)
  1. PRISTIQ [Suspect]
     Dates: start: 20100501
  2. ABILIFY [Suspect]
     Dates: start: 20100501

REACTIONS (1)
  - INSOMNIA [None]
